FAERS Safety Report 16056474 (Version 1)
Quarter: 2019Q1

REPORT INFORMATION
  Report Type: Spontaneous
  Country: IT (occurrence: IT)
  Receive Date: 20190311
  Receipt Date: 20190311
  Transmission Date: 20190418
  Serious: Yes (Hospitalization)
  Sender: FDA-Public Use
  Company Number: IT-PFIZER INC-2019106593

PATIENT
  Age: 75 Year
  Sex: Female

DRUGS (9)
  1. COUMADIN [Suspect]
     Active Substance: WARFARIN SODIUM
     Indication: HEART VALVE REPLACEMENT
     Dosage: 1 DF, 1X/DAY
     Route: 048
     Dates: start: 20130101, end: 20181022
  2. CARDURA [Concomitant]
     Active Substance: DOXAZOSIN MESYLATE
     Dosage: 1.0DF UNKNOWN
     Route: 048
     Dates: start: 20130101
  3. TENORMIN [Suspect]
     Active Substance: ATENOLOL
     Dosage: 1 DF, 1X/DAY
     Route: 048
     Dates: start: 20170613, end: 20181022
  4. PANTORC [Suspect]
     Active Substance: PANTOPRAZOLE SODIUM
     Dosage: 1 DF, 1X/DAY
     Route: 048
  5. EUTIROX [Concomitant]
     Active Substance: LEVOTHYROXINE SODIUM
     Dosage: 1.0DF UNKNOWN
     Route: 048
  6. NORVASC [Concomitant]
     Active Substance: AMLODIPINE BESYLATE
     Dosage: 1.0DF UNKNOWN
     Route: 048
  7. DIBASE [Concomitant]
     Active Substance: CHOLECALCIFEROL
     Dosage: 25.000 U.I./2,5 ML
     Route: 048
  8. ZYLORIC [Suspect]
     Active Substance: ALLOPURINOL
     Dosage: 1 DF, 1X/DAY
     Route: 048
  9. LUVION [CANRENOIC ACID] [Concomitant]
     Dosage: 1 DF, UNK
     Route: 048
     Dates: start: 20130101

REACTIONS (2)
  - International normalised ratio increased [Recovered/Resolved]
  - Overdose [Recovered/Resolved]

NARRATIVE: CASE EVENT DATE: 20181022
